FAERS Safety Report 4947737-3 (Version None)
Quarter: 2006Q1

REPORT INFORMATION
  Report Type: 
  Country: None (occurrence: None)
  Receive Date: 20060317
  Receipt Date: 20060317
  Transmission Date: 20060701
  Serious: Yes (Death, Hospitalization)
  Sender: FDA-Public Use
  Company Number: None

PATIENT
  Sex: Male
  Weight: 141 kg

DRUGS (2)
  1. RITUXIMAB MOAB C2B8 TI CD20, NIMERIC) [Suspect]
     Indication: BURKITT'S LYMPHOMA
     Dosage: 1000 MG
     Dates: start: 20060301, end: 20060305
  2. METHOTREXATE [Suspect]
     Dosage: 3925 MG
     Dates: start: 20060222, end: 20060222

REACTIONS (14)
  - ABDOMINAL PAIN LOWER [None]
  - ARRHYTHMIA [None]
  - ASCITES [None]
  - BLOOD CULTURE POSITIVE [None]
  - CARDIO-RESPIRATORY ARREST [None]
  - CONGESTIVE CARDIOMYOPATHY [None]
  - DIZZINESS [None]
  - ENTEROBACTER INFECTION [None]
  - HYPOTENSION [None]
  - INTESTINAL PERFORATION [None]
  - LOSS OF CONSCIOUSNESS [None]
  - METABOLIC ACIDOSIS [None]
  - RESPIRATORY DISTRESS [None]
  - TACHYCARDIA [None]
